FAERS Safety Report 7645494-3 (Version None)
Quarter: 2011Q3

REPORT INFORMATION
  Report Type: 
  Country: None (occurrence: None)
  Receive Date: 20110729
  Receipt Date: 20110722
  Transmission Date: 20111222
  Serious: Yes (Other)
  Sender: FDA-Public Use
  Company Number: US-AMGEN-US344627

PATIENT
  Age: 69 Year
  Sex: Female
  Weight: 80.8 kg

DRUGS (22)
  1. NPLATE [Suspect]
     Dosage: 720 A?G, UNK
     Route: 058
     Dates: start: 20090317, end: 20090317
  2. NPLATE [Suspect]
     Dosage: 800 A?G, UNK
     Route: 058
     Dates: start: 20090324, end: 20090407
  3. NPLATE [Suspect]
     Dosage: 81.63 A?G, QWK
     Route: 058
     Dates: start: 20081202, end: 20090407
  4. NPLATE [Suspect]
     Dates: start: 20081202, end: 20090407
  5. NPLATE [Suspect]
     Indication: IDIOPATHIC THROMBOCYTOPENIC PURPURA
     Dosage: 560 A?G, UNK
     Route: 058
     Dates: start: 20090113, end: 20090402
  6. NPLATE [Suspect]
     Dosage: 162 A?G, UNK
     Route: 058
     Dates: start: 20081209, end: 20081209
  7. NPLATE [Suspect]
     Dosage: 640 A?G, UNK
     Route: 058
     Dates: start: 20090310, end: 20090310
  8. NPLATE [Suspect]
     Dates: start: 20081202, end: 20090407
  9. DANAZOL [Concomitant]
     Dosage: UNK UNK, BID
     Route: 048
     Dates: start: 20080501
  10. NPLATE [Suspect]
     Dosage: 400 A?G, UNK
     Route: 058
     Dates: start: 20081230, end: 20081230
  11. LEVOFLOXACIN [Concomitant]
     Dosage: 500 MG, QID
     Route: 048
     Dates: start: 20080611
  12. RETINOL [Concomitant]
     Dosage: UNK UNK, QD
     Route: 048
     Dates: start: 20081206
  13. AMOXICILLIN TRIHYDRATE [Concomitant]
     Dosage: 500 MG, TID
     Route: 048
     Dates: start: 20080611
  14. PYCNOGENOL [Concomitant]
     Dosage: 25 MG, UNK
     Dates: start: 20080306
  15. INSULIN GLARGINE [Concomitant]
     Dosage: 100 IU, UNK
  16. METFORMIN HYDROCHLORIDE [Concomitant]
     Dosage: 500 MG, BID
  17. NPLATE [Suspect]
     Dosage: 320 A?G, UNK
     Route: 058
     Dates: start: 20081223, end: 20081223
  18. VITAMIN C AND E [Concomitant]
     Dosage: UNK UNK, QD
     Route: 048
     Dates: start: 20081206
  19. NPLATE [Suspect]
     Dosage: 560 A?G, UNK
     Route: 058
     Dates: start: 20090303, end: 20090303
  20. NPLATE [Suspect]
     Dosage: 240 A?G, UNK
     Route: 058
     Dates: start: 20081216, end: 20081216
  21. NPLATE [Suspect]
     Dosage: 480 A?G, UNK
     Route: 058
     Dates: start: 20090106, end: 20090106
  22. LOVAZA [Concomitant]
     Dosage: UNK UNK, QD
     Route: 048
     Dates: start: 20080306

REACTIONS (4)
  - CONTUSION [None]
  - DRUG INEFFECTIVE [None]
  - THERAPEUTIC RESPONSE DECREASED [None]
  - FATIGUE [None]
